FAERS Safety Report 19866074 (Version 1)
Quarter: 2021Q3

REPORT INFORMATION
  Report Type: Spontaneous
  Country: DE (occurrence: DE)
  Receive Date: 20210921
  Receipt Date: 20210921
  Transmission Date: 20211014
  Serious: Yes (Other)
  Sender: FDA-Public Use
  Company Number: DE-MYLANLABS-2021M1063744

PATIENT
  Sex: Female

DRUGS (1)
  1. TRAMADOL. [Suspect]
     Active Substance: TRAMADOL
     Indication: PAIN
     Dosage: ONCE A DAY. REGIMEN 1, STARTED APPROX. 13 YEARS AGO, NO LONGER IN SALES

REACTIONS (1)
  - Adrenal insufficiency [Not Recovered/Not Resolved]
